FAERS Safety Report 6815514-4 (Version None)
Quarter: 2010Q3

REPORT INFORMATION
  Report Type: 
  Country: None (occurrence: None)
  Receive Date: 20100702
  Receipt Date: 20100630
  Transmission Date: 20110219
  Serious: Yes (Other)
  Sender: FDA-Public Use
  Company Number: CHPA2010US10825

PATIENT
  Sex: Female

DRUGS (1)
  1. NODOZ (NCH) [Suspect]
     Dosage: UNK, UNK
     Route: 048
     Dates: start: 20100629, end: 20100629

REACTIONS (4)
  - FATIGUE [None]
  - HALLUCINATION [None]
  - INSOMNIA [None]
  - IRRITABILITY [None]
